FAERS Safety Report 18632938 (Version 2)
Quarter: 2020Q4

REPORT INFORMATION
  Report Type: Spontaneous
  Country: SK (occurrence: SK)
  Receive Date: 20201218
  Receipt Date: 20201222
  Transmission Date: 20210114
  Serious: Yes (Death)
  Sender: FDA-Public Use
  Company Number: SK-ROCHE-2733234

PATIENT
  Age: 80 Year
  Sex: Male
  Weight: 110 kg

DRUGS (2)
  1. ACTILYSE [Suspect]
     Active Substance: ALTEPLASE
     Indication: PRODUCT USED FOR UNKNOWN INDICATION
     Route: 065
     Dates: start: 20201108, end: 20201108
  2. PRAXBIND [Concomitant]
     Active Substance: IDARUCIZUMAB
     Indication: PROCOAGULANT THERAPY

REACTIONS (4)
  - Haemorrhagic transformation stroke [Fatal]
  - Vital functions abnormal [Fatal]
  - Brain oedema [Fatal]
  - Brain herniation [Fatal]
